FAERS Safety Report 18070203 (Version 2)
Quarter: 2021Q2

REPORT INFORMATION
  Report Type: Spontaneous
  Country: US (occurrence: US)
  Receive Date: 20200727
  Receipt Date: 20210407
  Transmission Date: 20210717
  Serious: Yes (Other)
  Sender: FDA-Public Use
  Company Number: US-SA-2020SA191926

PATIENT
  Age: 28 Year
  Sex: Male

DRUGS (2)
  1. ZANTAC [Suspect]
     Active Substance: RANITIDINE HYDROCHLORIDE
     Indication: ABDOMINAL DISCOMFORT
  2. ZANTAC [Suspect]
     Active Substance: RANITIDINE HYDROCHLORIDE
     Indication: DYSPEPSIA
     Dosage: 75 MG, QD
     Dates: start: 200503, end: 201911

REACTIONS (4)
  - Lung carcinoma cell type unspecified stage II [Recovering/Resolving]
  - Gastric cancer stage II [Recovering/Resolving]
  - Small intestine carcinoma stage II [Recovering/Resolving]
  - Gastrointestinal carcinoma [Unknown]

NARRATIVE: CASE EVENT DATE: 200605
